FAERS Safety Report 10012907 (Version 1)
Quarter: 2014Q1

REPORT INFORMATION
  Report Type: Spontaneous
  Country: US (occurrence: US)
  Receive Date: 20140314
  Receipt Date: 20140314
  Transmission Date: 20141002
  Serious: Yes (Hospitalization, Other)
  Sender: FDA-Public Use
  Company Number: US-GILEAD-2014-0096749

PATIENT
  Age: 63 Year
  Sex: Male

DRUGS (8)
  1. SOVALDI [Suspect]
     Indication: HEPATITIS C
     Dosage: UNK
     Route: 065
     Dates: start: 20140305
  2. SIMEPREVIR [Suspect]
     Indication: HEPATITIS C
     Dosage: UNK
     Route: 065
     Dates: start: 20140305
  3. RIBAVIRIN [Suspect]
     Indication: HEPATITIS C
     Dosage: UNK
     Route: 065
     Dates: start: 20140305
  4. TRUVADA [Concomitant]
     Indication: HIV INFECTION
  5. DOLUTEGRAVIR [Concomitant]
     Indication: HIV INFECTION
  6. TRAZODONE [Concomitant]
     Indication: INSOMNIA
  7. TRIAZOLAM [Concomitant]
     Indication: INSOMNIA
  8. PROPYLTHIOURACIL [Concomitant]
     Indication: HYPERTHYROIDISM

REACTIONS (4)
  - Convulsion [Unknown]
  - Hypothyroidism [Unknown]
  - Insomnia [Unknown]
  - Off label use [Unknown]
